FAERS Safety Report 5402258-9 (Version None)
Quarter: 2007Q3

REPORT INFORMATION
  Report Type: 
  Country: None (occurrence: None)
  Receive Date: 20070801
  Receipt Date: 20070730
  Transmission Date: 20080115
  Serious: Yes (Life-Threatening, Hospitalization)
  Sender: FDA-Public Use
  Company Number: HQWYE488115AUG06

PATIENT
  Age: 3 Year
  Sex: Female
  Weight: 16.34 kg

DRUGS (6)
  1. LORATADINE REDIDOSE [Suspect]
     Indication: SNEEZING
     Dosage: 1 TABLET AS NEEDED
     Route: 048
     Dates: start: 20050501, end: 20050101
  2. LORATADINE REDIDOSE [Suspect]
     Indication: RHINORRHOEA
     Route: 048
     Dates: start: 20050101
  3. LORATADINE REDIDOSE [Suspect]
     Indication: EYE SWELLING
  4. LORATADINE REDIDOSE [Suspect]
     Indication: SEASONAL ALLERGY
  5. OMNICEF [Concomitant]
     Indication: PYREXIA
     Dosage: ^250/5 SUSP^ 1 TEASPOON DAILY
     Route: 065
  6. OMNICEF [Concomitant]
     Indication: SINUSITIS

REACTIONS (1)
  - GRAND MAL CONVULSION [None]
